FAERS Safety Report 24178273 (Version 1)
Quarter: 2024Q3

REPORT INFORMATION
  Report Type: Spontaneous
  Country: JP (occurrence: JP)
  Receive Date: 20240806
  Receipt Date: 20240806
  Transmission Date: 20241017
  Serious: Yes (Other)
  Sender: JAZZ
  Company Number: JP-JAZZ PHARMACEUTICALS-2024-JP-010273

PATIENT
  Age: 59 Year

DRUGS (1)
  1. VYXEOS [Suspect]
     Active Substance: CYTARABINE\DAUNORUBICIN
     Indication: Acute myeloid leukaemia
     Dosage: UNK
     Route: 042
     Dates: start: 20240620, end: 20240624

REACTIONS (2)
  - Acute myeloid leukaemia [Unknown]
  - Cytarabine syndrome [Recovered/Resolved]

NARRATIVE: CASE EVENT DATE: 20240601
